FAERS Safety Report 4933532-8 (Version None)
Quarter: 2006Q1

REPORT INFORMATION
  Report Type: 
  Country: None (occurrence: None)
  Receive Date: 20060306
  Receipt Date: 20060228
  Transmission Date: 20060701
  Serious: Yes (Death, Hospitalization, Disabling)
  Sender: FDA-Public Use
  Company Number: PHHO2006JP03578

PATIENT
  Age: 58 Year
  Sex: Male

DRUGS (5)
  1. NEORAL [Suspect]
     Indication: LUNG TRANSPLANT
     Route: 048
     Dates: start: 20050930, end: 20051010
  2. NEORAL [Suspect]
     Route: 048
     Dates: start: 20051019, end: 20051102
  3. SANDIMMUNE [Suspect]
     Indication: LUNG TRANSPLANT
     Route: 042
     Dates: start: 20050823, end: 20050929
  4. PROGRAF [Suspect]
     Indication: LUNG TRANSPLANT
     Route: 048
     Dates: start: 20051011, end: 20051018
  5. CELLCEPT [Concomitant]
     Indication: LUNG TRANSPLANT
     Route: 048
     Dates: start: 20050913

REACTIONS (10)
  - ANAEMIA [None]
  - BLOOD BILIRUBIN INCREASED [None]
  - DEPRESSED LEVEL OF CONSCIOUSNESS [None]
  - INFECTION [None]
  - LEUKOENCEPHALOPATHY [None]
  - RENAL IMPAIRMENT [None]
  - SEPSIS [None]
  - SURGERY [None]
  - THROMBOCYTOPENIA [None]
  - THROMBOTIC MICROANGIOPATHY [None]
